FAERS Safety Report 12269382 (Version 2)
Quarter: 2016Q3

REPORT INFORMATION
  Report Type: Report from Study
  Country: AU (occurrence: AU)
  Receive Date: 20160414
  Receipt Date: 20160808
  Transmission Date: 20161109
  Serious: Yes (Other)
  Sender: FDA-Public Use
  Company Number: AU-REGENERON PHARMACEUTICALS, INC.-2016-15355

PATIENT

DRUGS (1)
  1. EYLEA [Suspect]
     Active Substance: AFLIBERCEPT
     Indication: NEOVASCULAR AGE-RELATED MACULAR DEGENERATION
     Dosage: 2 MG, 5-6 WEEKS
     Route: 031
     Dates: start: 20140709

REACTIONS (6)
  - Muscle disorder [Unknown]
  - Glaucoma [Unknown]
  - Product use issue [Unknown]
  - Arthritis [Unknown]
  - Arthralgia [Unknown]
  - Rectal polyp [Recovered/Resolved]

NARRATIVE: CASE EVENT DATE: 20140709
